FAERS Safety Report 5269431-4 (Version None)
Quarter: 2007Q1

REPORT INFORMATION
  Report Type: 
  Country: None (occurrence: None)
  Receive Date: 20070316
  Receipt Date: 20070316
  Transmission Date: 20070707
  Serious: Yes (Life-Threatening)
  Sender: FDA-Public Use
  Company Number: None

PATIENT
  Age: 82 Year
  Sex: Male
  Weight: 74.8435 kg

DRUGS (6)
  1. VERAPAMIL [Suspect]
     Indication: HYPERTENSION
     Dosage: 240 MG DAILY 047
     Dates: start: 20070205
  2. DIGOXIN [Concomitant]
  3. ASPIRIN [Concomitant]
  4. PLAVIX [Concomitant]
  5. CRESTOR [Concomitant]
  6. ZOCOR [Concomitant]

REACTIONS (4)
  - BLOOD PRESSURE SYSTOLIC INCREASED [None]
  - DRUG INEFFECTIVE [None]
  - PHARMACEUTICAL PRODUCT COMPLAINT [None]
  - THERAPEUTIC RESPONSE UNEXPECTED WITH DRUG SUBSTITUTION [None]
